FAERS Safety Report 7972887-7 (Version None)
Quarter: 2011Q4

REPORT INFORMATION
  Report Type: 
  Country: None (occurrence: None)
  Receive Date: 20111213
  Receipt Date: 20111206
  Transmission Date: 20120403
  Serious: Yes (Other)
  Sender: FDA-Public Use
  Company Number: CH-UCBSA-047277

PATIENT
  Age: 34 Year
  Sex: Female

DRUGS (4)
  1. LAMICTAL [Suspect]
     Indication: EPILEPSY
  2. FOLIC ACID [Concomitant]
  3. KEPPRA [Suspect]
     Indication: EPILEPSY
     Dosage: 250 MG 3 PER DAY
  4. MUTAGRIP [Concomitant]
     Dates: start: 20101119, end: 20101119

REACTIONS (2)
  - ANTEPARTUM HAEMORRHAGE [None]
  - MATERNAL EXPOSURE DURING PREGNANCY [None]
